FAERS Safety Report 24265831 (Version 1)
Quarter: 2024Q3

REPORT INFORMATION
  Report Type: Report from Study
  Country: BE (occurrence: BE)
  Receive Date: 20240830
  Receipt Date: 20240830
  Transmission Date: 20241017
  Serious: Yes (Death)
  Sender: ABBVIE
  Company Number: BE-ABBVIE-5900804

PATIENT
  Age: 86 Year
  Sex: Female

DRUGS (2)
  1. CARBIDOPA\LEVODOPA [Suspect]
     Active Substance: CARBIDOPA\LEVODOPA
     Indication: Parkinson^s disease
     Dosage: MD:7.0 ML; CD: 2.8 ML/H; ED: 2.00 ML REMAINS AT 16
     Route: 050
     Dates: start: 20240403, end: 20240827
  2. CARBIDOPA\LEVODOPA [Suspect]
     Active Substance: CARBIDOPA\LEVODOPA
     Route: 050
     Dates: start: 20170417

REACTIONS (1)
  - Death [Fatal]

NARRATIVE: CASE EVENT DATE: 20240827
